FAERS Safety Report 6046791-8 (Version None)
Quarter: 2009Q1

REPORT INFORMATION
  Report Type: 
  Country: None (occurrence: None)
  Receive Date: 20090122
  Receipt Date: 20090116
  Transmission Date: 20090719
  Serious: Yes (Other)
  Sender: FDA-Public Use
  Company Number: A0730991A

PATIENT
  Age: 52 Year
  Sex: Female
  Weight: 130 kg

DRUGS (8)
  1. AVANDIA [Suspect]
     Dosage: 2MG TWICE PER DAY
     Route: 048
     Dates: start: 20050531, end: 20051015
  2. AVANDAMET [Suspect]
     Route: 048
     Dates: start: 20050322, end: 20060728
  3. PLAVIX [Concomitant]
  4. FERROUS SULFATE TAB [Concomitant]
  5. BENAZAPRIL [Concomitant]
  6. DILTIAZEM [Concomitant]
  7. ASPIRIN [Concomitant]
  8. LASIX [Concomitant]

REACTIONS (2)
  - OEDEMA [None]
  - PERICARDIAL EFFUSION [None]
